FAERS Safety Report 17255495 (Version 1)
Quarter: 2020Q1

REPORT INFORMATION
  Report Type: Spontaneous
  Country: US (occurrence: US)
  Receive Date: 20200110
  Receipt Date: 20200110
  Transmission Date: 20200409
  Serious: Yes (Life-Threatening, Other)
  Sender: FDA-Public Use
  Company Number: US-B.I. PHARMACEUTICALS,INC./RIDGEFIELD-2020-BI-001313

PATIENT
  Age: 12 Year
  Sex: Male

DRUGS (3)
  1. ALBUTEROL [SALBUTAMOL] [Suspect]
     Active Substance: ALBUTEROL
     Indication: ASTHMA
     Dosage: NEBULIZATION
     Route: 065
  2. MAGNESIUM [Concomitant]
     Active Substance: MAGNESIUM
     Indication: ASTHMA
     Route: 065
  3. ATROVENT [Suspect]
     Active Substance: IPRATROPIUM BROMIDE
     Indication: ASTHMA
     Route: 065

REACTIONS (5)
  - Pulmonary oedema [Recovering/Resolving]
  - Staphylococcal infection [Unknown]
  - Enterovirus test positive [Unknown]
  - Upper respiratory tract infection bacterial [Unknown]
  - Respiratory failure [Recovering/Resolving]
